FAERS Safety Report 4452761-3 (Version None)
Quarter: 2004Q3

REPORT INFORMATION
  Report Type: 
  Country: None (occurrence: None)
  Receive Date: 20040813
  Receipt Date: 20040416
  Transmission Date: 20050211
  Serious: No
  Sender: FDA-Public Use
  Company Number: S04-USA-03373-01

PATIENT
  Age: 80 Year
  Sex: Male

DRUGS (12)
  1. NAMENDA [Suspect]
     Indication: DEMENTIA
     Dosage: 20 MG QD PO
     Route: 048
     Dates: start: 20040101
  2. NAMENDA [Suspect]
     Indication: DEMENTIA
     Dosage: 5 MG QD PO
     Route: 048
     Dates: start: 20040101, end: 20040101
  3. NAMENDA [Suspect]
     Indication: DEMENTIA
     Dosage: 10 MG QD PO
     Route: 048
     Dates: start: 20040101, end: 20040101
  4. NAMENDA [Suspect]
     Indication: DEMENTIA
     Dosage: 15 MG QD PO
     Route: 048
     Dates: start: 20040101, end: 20040101
  5. ARICEPT [Concomitant]
  6. ZOLOFT [Concomitant]
  7. SYNTHROID [Concomitant]
  8. ACTOS [Concomitant]
  9. ASPIRIN [Concomitant]
  10. DITROPAN [Concomitant]
  11. INSULIN [Concomitant]
  12. MULTI-VITAMIN [Concomitant]

REACTIONS (3)
  - ASTHENIA [None]
  - CONFUSIONAL STATE [None]
  - SOMNOLENCE [None]
